FAERS Safety Report 4660762-5 (Version None)
Quarter: 2005Q2

REPORT INFORMATION
  Report Type: 
  Country: None (occurrence: None)
  Receive Date: 20050427
  Receipt Date: 20040412
  Transmission Date: 20051028
  Serious: Yes (Hospitalization)
  Sender: FDA-Public Use
  Company Number: US-JNJFOC-20040105580

PATIENT
  Age: 76 Year
  Sex: Female

DRUGS (3)
  1. ULTRAM [Suspect]
     Indication: ABDOMINAL PAIN
     Dosage: 4 IN 1 DAY, ORAL
     Route: 048
  2. SYNTHROID (LEVOTHYROXINE SOIDUM) [Concomitant]
  3. CALCIUM (CALCIUM) [Concomitant]

REACTIONS (1)
  - ABDOMINAL PAIN UPPER [None]
